FAERS Safety Report 18001583 (Version 4)
Quarter: 2021Q3

REPORT INFORMATION
  Report Type: Spontaneous
  Country: US (occurrence: US)
  Receive Date: 20200709
  Receipt Date: 20210714
  Transmission Date: 20211014
  Serious: Yes (Hospitalization, Other)
  Sender: FDA-Public Use
  Company Number: US-TEVA-2020-US-1800059

PATIENT
  Age: 67 Year
  Sex: Male

DRUGS (3)
  1. DIOVAN HCT [Suspect]
     Active Substance: HYDROCHLOROTHIAZIDE\VALSARTAN
     Indication: HYPERTENSION
     Dosage: 1 DOSAGE FORMS DAILY; VALSARTAN 160/HYDROCHLOROTHIAZIDE 12.5 MG
     Route: 048
     Dates: start: 2009, end: 2012
  2. VALSARTAN/HYDROCHLOROTHIAZIDE ACTAVIS [Suspect]
     Active Substance: HYDROCHLOROTHIAZIDE\VALSARTAN
     Indication: HYPERTENSION
     Dosage: 1 DOSAGE FORMS DAILY; VALSARTAN 160/HYDROCHLOROTHIAZIDE 12.5 MG
     Route: 048
     Dates: start: 20140222, end: 20180711
  3. VALSARTAN/HYDROCHLOROTHIAZIDE MYLAN [Suspect]
     Active Substance: HYDROCHLOROTHIAZIDE\VALSARTAN
     Indication: HYPERTENSION
     Dosage: 1 DOSAGE FORMS DAILY; VALSARTAN 160/HYDROCHLOROTHIAZIDE 12.5 MG
     Route: 048
     Dates: start: 20121005, end: 20140327

REACTIONS (3)
  - Bladder cancer [Recovered/Resolved]
  - Incontinence [Not Recovered/Not Resolved]
  - Adrenal adenoma [Unknown]

NARRATIVE: CASE EVENT DATE: 201501
